FAERS Safety Report 6159419-3 (Version None)
Quarter: 2009Q2

REPORT INFORMATION
  Report Type: 
  Country: None (occurrence: None)
  Receive Date: 20090417
  Receipt Date: 20090415
  Transmission Date: 20091009
  Serious: Yes (Life-Threatening, Hospitalization)
  Sender: FDA-Public Use
  Company Number: PHHY2009GB14255

PATIENT
  Age: 61 Year
  Sex: Female

DRUGS (5)
  1. ACLASTA [Suspect]
     Indication: OSTEOPOROSIS
     Dosage: UNK
     Route: 042
     Dates: start: 20090227
  2. ADCAL-D3 [Concomitant]
     Indication: OSTEOPOROSIS
     Route: 048
  3. CELECOXIB [Concomitant]
     Indication: RHEUMATOID ARTHRITIS
     Dosage: 100 MG, BID
     Route: 048
  4. DEPO-MEDRONE [Concomitant]
     Indication: RHEUMATOID ARTHRITIS
     Dosage: UNK
     Route: 030
     Dates: start: 20080101, end: 20090201
  5. OMEPRAZOLE [Concomitant]
     Dosage: 20 MG

REACTIONS (7)
  - CHILLS [None]
  - HEADACHE [None]
  - HYPOTENSION [None]
  - MALAISE [None]
  - PYREXIA [None]
  - SEPSIS [None]
  - VOMITING [None]
